FAERS Safety Report 8886547 (Version 2)
Quarter: 2012Q4

REPORT INFORMATION
  Report Type: 
  Country: JP (occurrence: JP)
  Receive Date: 20121105
  Receipt Date: 20121227
  Transmission Date: 20130627
  Serious: Yes (Other)
  Sender: FDA-Public Use
  Company Number: JP-BAYER-2012-114575

PATIENT
  Age: 83 Year
  Sex: Female
  Weight: 58 kg

DRUGS (2)
  1. PRIMOVIST [Suspect]
     Indication: NUCLEAR MAGNETIC RESONANCE IMAGING LIVER
     Dosage: 0.1 ml/kg, ONCE
     Route: 042
     Dates: start: 20121023, end: 20121023
  2. URSO [Suspect]
     Indication: CHRONIC HEPATITIS
     Dosage: Daily dose 600 mg
     Route: 048
     Dates: start: 20070213

REACTIONS (3)
  - Blood pressure decreased [Recovered/Resolved]
  - Depressed level of consciousness [Recovered/Resolved]
  - Pruritus [Recovered/Resolved]
